FAERS Safety Report 9115106 (Version 1)
Quarter: 2013Q1

REPORT INFORMATION
  Report Type: Spontaneous
  Country: US (occurrence: US)
  Receive Date: 20130225
  Receipt Date: 20130225
  Transmission Date: 20140127
  Serious: Yes (Other)
  Sender: FDA-Public Use
  Company Number: US-COVIDIEN/TYCO HEALTHCARE/MALLINCKRODT-T201204520

PATIENT
  Sex: Male

DRUGS (6)
  1. GABLOFEN [Suspect]
     Indication: MUSCLE SPASTICITY
     Dosage: 100 - 547MCG/DAY
     Route: 037
     Dates: end: 201207
  2. LIORESAL [Concomitant]
     Dosage: UNK
  3. MULTI-VIT [Concomitant]
     Dosage: UNK, QD
  4. VITAMIN D NOS [Concomitant]
     Dosage: UNK, QD
  5. BUSPAR [Concomitant]
     Dosage: 15 MG, TID
  6. BACLOFEN [Concomitant]
     Dosage: UNK UNK, PRN
     Route: 048

REACTIONS (3)
  - Drug ineffective [Unknown]
  - Tinnitus [Unknown]
  - Device dislocation [Unknown]
